FAERS Safety Report 8224687-0 (Version None)
Quarter: 2012Q1

REPORT INFORMATION
  Report Type: 
  Country: None (occurrence: None)
  Receive Date: 20120321
  Receipt Date: 20120316
  Transmission Date: 20120608
  Serious: No
  Sender: FDA-Public Use
  Company Number: US-PFIZER INC-2012070101

PATIENT
  Sex: Female

DRUGS (3)
  1. EFFEXOR XR [Suspect]
     Indication: MALAISE
     Dosage: 150 MG, 1X/DAY
     Route: 048
     Dates: start: 20120309
  2. EFFEXOR XR [Suspect]
     Indication: STRESS AT WORK
     Dosage: 75 MG, 1X/DAY
     Route: 048
     Dates: start: 20120222, end: 20120309
  3. EFFEXOR XR [Suspect]
     Dosage: UNK
     Route: 048

REACTIONS (2)
  - DRUG INEFFECTIVE [None]
  - MEDICATION RESIDUE [None]
